FAERS Safety Report 18306926 (Version 1)
Quarter: 2020Q3

REPORT INFORMATION
  Report Type: Report from Study
  Country: CA (occurrence: CA)
  Receive Date: 20200924
  Receipt Date: 20200924
  Transmission Date: 20201103
  Serious: Yes (Other)
  Sender: FDA-Public Use
  Company Number: CA-ACCORD-202124

PATIENT
  Age: 24 Year
  Sex: Female

DRUGS (6)
  1. HUMIRA [Concomitant]
     Active Substance: ADALIMUMAB
     Dosage: 1 EVERY 1 MONTHS, SOLUTION SUBCUTANEOUS
     Route: 058
  2. CELEBREX [Concomitant]
     Active Substance: CELECOXIB
  3. ACTEMRA [Suspect]
     Active Substance: TOCILIZUMAB
     Indication: JUVENILE IDIOPATHIC ARTHRITIS
     Dosage: 1 EVERY 4 WEEKS
     Route: 042
  4. ACTEMRA [Suspect]
     Active Substance: TOCILIZUMAB
     Indication: JUVENILE IDIOPATHIC ARTHRITIS
     Dosage: 1 EVERY 1 WEEKS, SOLUTION FOR INJECTION IN PRE?FILLED SYRINGE
     Route: 058
  5. PREDNISONE. [Concomitant]
     Active Substance: PREDNISONE
  6. MYCOPHENOLIC ACID. [Suspect]
     Active Substance: MYCOPHENOLIC ACID
     Indication: PRODUCT USED FOR UNKNOWN INDICATION
     Dosage: 2 EVERY 1 DAYS
     Route: 065

REACTIONS (6)
  - Anxiety [Unknown]
  - Blood pressure increased [Unknown]
  - Oropharyngeal pain [Unknown]
  - Sinus congestion [Unknown]
  - Cough [Unknown]
  - Nasopharyngitis [Unknown]
